FAERS Safety Report 4356943-0 (Version None)
Quarter: 2004Q2

REPORT INFORMATION
  Report Type: 
  Country: None (occurrence: None)
  Receive Date: 20040507
  Receipt Date: 20040422
  Transmission Date: 20050107
  Serious: Yes (Hospitalization)
  Sender: FDA-Public Use
  Company Number: T04-USA-00435-01

PATIENT
  Age: 17 Year
  Sex: Male
  Weight: 97.0698 kg

DRUGS (3)
  1. ESCITALOPRAM (UNBLINDED) (ESCITALOPRAM) [Suspect]
     Indication: MAJOR DEPRESSION
  2. PLACEBO (UNBLINDED) [Suspect]
     Indication: DEPRESSION
     Dosage: 1 TABLET QD PO
     Route: 048
     Dates: start: 20031204, end: 20040125
  3. PLACEBO (SINGLE BLIND) [Suspect]
     Indication: MAJOR DEPRESSION
     Dosage: 1 TABLET QD PO
     Route: 048
     Dates: start: 20031124, end: 20031203

REACTIONS (20)
  - ABNORMAL BEHAVIOUR [None]
  - AGITATION [None]
  - BIPOLAR DISORDER [None]
  - BLOOD GLUCOSE INCREASED [None]
  - BLOOD THYROID STIMULATING HORMONE INCREASED [None]
  - EXTRAPYRAMIDAL DISORDER [None]
  - FAMILY STRESS [None]
  - INSOMNIA [None]
  - IRRITABILITY [None]
  - LOGORRHOEA [None]
  - MOOD ALTERED [None]
  - MOOD SWINGS [None]
  - MUSCLE TIGHTNESS [None]
  - PARANOIA [None]
  - PSYCHOMOTOR HYPERACTIVITY [None]
  - PSYCHOTIC DISORDER [None]
  - SELF MUTILATION [None]
  - SLEEP DISORDER [None]
  - SOMNOLENCE [None]
  - SPEECH DISORDER [None]
